FAERS Safety Report 9438295 (Version 1)
Quarter: 2013Q3

REPORT INFORMATION
  Report Type: Spontaneous
  Country: US (occurrence: US)
  Receive Date: 20130802
  Receipt Date: 20130802
  Transmission Date: 20140515
  Serious: Yes (Other)
  Sender: FDA-Public Use
  Company Number: US-BRISTOL-MYERS SQUIBB COMPANY-17014036

PATIENT
  Age: 78 Year
  Sex: Female
  Weight: 55.78 kg

DRUGS (3)
  1. COUMADIN [Suspect]
  2. NEURONTIN [Suspect]
     Indication: PAIN IN EXTREMITY
  3. XALATAN [Suspect]
     Indication: ABNORMAL SENSATION IN EYE
     Route: 047

REACTIONS (1)
  - Haematoma [Recovered/Resolved]
